FAERS Safety Report 9823326 (Version 1)
Quarter: 2014Q1

REPORT INFORMATION
  Report Type: Spontaneous
  Country: US (occurrence: US)
  Receive Date: 20140116
  Receipt Date: 20140116
  Transmission Date: 20141002
  Serious: Yes (Other)
  Sender: FDA-Public Use
  Company Number: CHPA2014US000830

PATIENT
  Sex: Female

DRUGS (5)
  1. GAS-X UNKNOWN [Suspect]
     Indication: ABDOMINAL DISTENSION
     Dosage: 1 OR 2 DF, PRN
     Route: 048
  2. GAS-X UNKNOWN [Suspect]
     Indication: GASTROOESOPHAGEAL REFLUX DISEASE
  3. GAS-X UNKNOWN [Suspect]
     Indication: OFF LABEL USE
  4. ZANTAC [Concomitant]
     Indication: GASTROOESOPHAGEAL REFLUX DISEASE
  5. MIRALAX [Concomitant]
     Indication: IRRITABLE BOWEL SYNDROME

REACTIONS (6)
  - Arthritis [Unknown]
  - Hypersensitivity [Recovered/Resolved]
  - Photophobia [Recovered/Resolved]
  - Abdominal distension [Recovered/Resolved]
  - Feeling abnormal [Recovered/Resolved]
  - Therapeutic response decreased [Unknown]
